FAERS Safety Report 5740369-9 (Version None)
Quarter: 2008Q2

REPORT INFORMATION
  Report Type: 
  Country: None (occurrence: None)
  Receive Date: 20080516
  Receipt Date: 20080508
  Transmission Date: 20081010
  Serious: Yes (Hospitalization, Other)
  Sender: FDA-Public Use
  Company Number: US-ASTRAZENECA-2007UW03833

PATIENT
  Age: 253 Month
  Sex: Male
  Weight: 71.8 kg

DRUGS (5)
  1. SEROQUEL [Suspect]
     Indication: BIPOLAR DISORDER
     Route: 048
     Dates: start: 20020401
  2. SEROQUEL [Suspect]
     Indication: DEPRESSION
     Route: 048
     Dates: start: 20020401
  3. SEROQUEL [Suspect]
     Indication: SCHIZOPHRENIA
     Route: 048
     Dates: start: 20020401
  4. RISPERDAL [Concomitant]
     Dates: start: 20070401, end: 20070414
  5. DEPAKOTE [Concomitant]

REACTIONS (5)
  - DRUG ABUSE [None]
  - DRUG WITHDRAWAL SYNDROME [None]
  - PANCREATITIS [None]
  - ROAD TRAFFIC ACCIDENT [None]
  - TYPE 2 DIABETES MELLITUS [None]
